FAERS Safety Report 15403019 (Version 1)
Quarter: 2018Q4

REPORT INFORMATION
  Report Type: Spontaneous
  Country: CL (occurrence: CL)
  Receive Date: 20180919
  Receipt Date: 20180919
  Transmission Date: 20190204
  Serious: Yes (Other)
  Sender: FDA-Public Use
  Company Number: CL-ASTRAZENECA-2018SF17910

PATIENT
  Sex: Male

DRUGS (2)
  1. VANNAIR 80 [Suspect]
     Active Substance: BUDESONIDE\FORMOTEROL FUMARATE DIHYDRATE
     Dosage: 80/4.5MCG UNKNOWN
     Route: 055
  2. VANNAIR 80 [Suspect]
     Active Substance: BUDESONIDE\FORMOTEROL FUMARATE DIHYDRATE
     Dosage: 160/4.5 UNKNOWN
     Route: 055

REACTIONS (1)
  - Asthmatic crisis [Unknown]
